FAERS Safety Report 5060127-0 (Version None)
Quarter: 2006Q3

REPORT INFORMATION
  Report Type: 
  Country: None (occurrence: None)
  Receive Date: 20060718
  Receipt Date: 20060630
  Transmission Date: 20061208
  Serious: No
  Sender: FDA-Public Use
  Company Number: FR200607000099

PATIENT
  Age: 58 Year
  Sex: Male

DRUGS (2)
  1. CIALIS [Suspect]
     Indication: OFF LABEL USE
     Dosage: 0.5 D/F, OTHER, ORAL
     Route: 048
     Dates: start: 20060301, end: 20060301
  2. CIALIS [Suspect]
     Indication: OFF LABEL USE
     Dosage: 0.5 D/F, OTHER, ORAL
     Route: 048
     Dates: start: 20060610, end: 20060610

REACTIONS (2)
  - DRY EYE [None]
  - VISION BLURRED [None]
